FAERS Safety Report 6528282-0 (Version None)
Quarter: 2010Q1

REPORT INFORMATION
  Report Type: 
  Country: None (occurrence: None)
  Receive Date: 20100106
  Receipt Date: 20091225
  Transmission Date: 20100710
  Serious: Yes (Other)
  Sender: FDA-Public Use
  Company Number: PHBS2007JP18073

PATIENT
  Age: 64 Year
  Sex: Female

DRUGS (2)
  1. AREDIA [Suspect]
     Indication: MULTIPLE MYELOMA
     Dosage: UNK
     Route: 042
  2. BISPHONAL [Suspect]
     Indication: MULTIPLE MYELOMA
     Dosage: UNK
     Route: 042

REACTIONS (5)
  - BONE DISORDER [None]
  - BONE SWELLING [None]
  - OSTEONECROSIS [None]
  - PURULENT DISCHARGE [None]
  - SEQUESTRECTOMY [None]
